FAERS Safety Report 5788697-5 (Version None)
Quarter: 2008Q2

REPORT INFORMATION
  Report Type: 
  Country: None (occurrence: None)
  Receive Date: 20080618
  Receipt Date: 20071119
  Transmission Date: 20081010
  Serious: Yes (Other)
  Sender: FDA-Public Use
  Company Number: 200718202US

PATIENT
  Age: 69 Year
  Sex: Male
  Weight: 92.8 kg

DRUGS (8)
  1. LANTUS [Suspect]
     Indication: TYPE 2 DIABETES MELLITUS
     Dosage: 25-6 U QPM
  2. LANTUS [Suspect]
     Indication: TYPE 2 DIABETES MELLITUS
     Dosage: 25-6 U QAM
  3. HUMALOG [Concomitant]
  4. METFORMIN HYDROCHLORIDE [Concomitant]
  5. LISINOPRIL [Concomitant]
  6. FOLIC ACID [Concomitant]
  7. ASPIRIN [Concomitant]
  8. LIPITOR [Concomitant]

REACTIONS (6)
  - BLOOD GLUCOSE INCREASED [None]
  - CONFUSIONAL STATE [None]
  - FALL [None]
  - HYPOGLYCAEMIA [None]
  - MUSCULAR WEAKNESS [None]
  - MYALGIA [None]
